FAERS Safety Report 7345062-7 (Version None)
Quarter: 2011Q1

REPORT INFORMATION
  Report Type: 
  Country: None (occurrence: None)
  Receive Date: 20110310
  Receipt Date: 20110228
  Transmission Date: 20110831
  Serious: Yes (Hospitalization, Other)
  Sender: FDA-Public Use
  Company Number: US-ELI_LILLY_AND_COMPANY-US201007002951

PATIENT
  Sex: Male

DRUGS (24)
  1. IMODIUM MULTI-SYMPTOM RELIEF [Concomitant]
     Indication: ANTIDIARRHOEAL SUPPORTIVE CARE
  2. PREDNISONE [Concomitant]
  3. METHOTREXATE [Concomitant]
     Dosage: UNK, UNKNOWN
     Route: 065
  4. THYROID THERAPY [Concomitant]
  5. ASPIRIN [Concomitant]
     Dosage: 81 D/F, 1/2 OF 81
  6. REMICADE [Concomitant]
     Dosage: UNK, UNKNOWN
     Route: 065
  7. FORTEO [Suspect]
     Dosage: 20 UG, DAILY (1/D)
     Route: 065
     Dates: start: 20110101
  8. ALLOPURINOL [Concomitant]
  9. COZAAR [Concomitant]
  10. CALCIUM 600 PLUS VITAMIN D [Concomitant]
  11. FORTEO [Suspect]
     Dosage: 20 UG, DAILY (1/D)
     Dates: start: 20101106
  12. FOLIC ACID [Concomitant]
  13. TRAMADOL [Concomitant]
     Indication: PAIN
  14. FISH OIL [Concomitant]
     Dosage: UNK, UNKNOWN
     Route: 065
  15. GABAPEN [Concomitant]
  16. POLYETHYLENE GLYCOL [Concomitant]
     Dosage: UNK, UNKNOWN
     Route: 065
  17. FORTEO [Suspect]
     Indication: BONE DISORDER
     Dosage: 20 UG, DAILY (1/D)
     Route: 065
     Dates: start: 20100208
  18. MAXZIDE [Concomitant]
  19. VITAMIN D [Concomitant]
     Dosage: 1.25 MG, UNKNOWN
  20. CENTRUM SILVER [Concomitant]
  21. TRIAMTEX [Concomitant]
     Dosage: UNK, UNKNOWN
     Route: 065
  22. FORTEO [Suspect]
     Dosage: 20 UG, DAILY (1/D)
     Dates: end: 20100618
  23. ANTIDIARRHEAL [Concomitant]
     Dosage: UNK, UNKNOWN
     Route: 065
  24. FORTEO [Suspect]
     Dosage: 20 UG, DAILY (1/D)

REACTIONS (5)
  - INTENTIONAL DRUG MISUSE [None]
  - GAIT DISTURBANCE [None]
  - MEDICATION ERROR [None]
  - TRANSFUSION [None]
  - FRACTURE NONUNION [None]
